FAERS Safety Report 8568374-8 (Version None)
Quarter: 2012Q3

REPORT INFORMATION
  Report Type: 
  Country: None (occurrence: None)
  Receive Date: 20120803
  Receipt Date: 20120504
  Transmission Date: 20120928
  Serious: No
  Sender: FDA-Public Use
  Company Number: US-ABBOTT-12P-163-0932707-00

PATIENT
  Sex: Male
  Weight: 111.23 kg

DRUGS (2)
  1. NIASPAN [Suspect]
     Indication: BLOOD TRIGLYCERIDES INCREASED
     Dosage: 500MG EVERY NIGHT
     Dates: start: 20120504
  2. ZITHROMAX [Concomitant]
     Indication: NASOPHARYNGITIS

REACTIONS (1)
  - ABDOMINAL DISCOMFORT [None]
